FAERS Safety Report 7823509-7 (Version None)
Quarter: 2011Q4

REPORT INFORMATION
  Report Type: 
  Country: None (occurrence: None)
  Receive Date: 20111019
  Receipt Date: 20111014
  Transmission Date: 20120403
  Serious: Yes (Other)
  Sender: FDA-Public Use
  Company Number: FR-PFIZER INC-2011247363

PATIENT
  Sex: Male

DRUGS (3)
  1. OXYCODONE HCL [Suspect]
     Dosage: 5 MG DAILY
  2. LYRICA [Suspect]
     Dosage: 50 MG DAILY
  3. OXYCODONE HCL [Suspect]
     Dosage: 10 MG DAILY

REACTIONS (3)
  - SOMNOLENCE [None]
  - HYPERKINESIA [None]
  - RESPIRATORY DEPRESSION [None]
